FAERS Safety Report 10082451 (Version 1)
Quarter: 2014Q2

REPORT INFORMATION
  Report Type: Report from Study
  Country: US (occurrence: US)
  Receive Date: 20140416
  Receipt Date: 20140416
  Transmission Date: 20141212
  Serious: Yes (Other)
  Sender: FDA-Public Use
  Company Number: US-MPIJNJ-2014MPI001133

PATIENT
  Age: 66 Year
  Sex: 0
  Weight: 88.9 kg

DRUGS (3)
  1. VELCADE [Suspect]
     Indication: PLASMA CELL MYELOMA
     Dosage: 3 MG, UNK 4 TIMES PER WEEK
     Route: 042
     Dates: start: 20100712, end: 20110110
  2. CYTOXAN [Suspect]
     Indication: PLASMA CELL MYELOMA
     Dosage: 50 MG, QD  FOR 1 MONTH
     Route: 048
     Dates: start: 20111227, end: 20120405
  3. CYTOXAN [Suspect]
     Dosage: 25 MG, QD  FOR 1 MONTH
     Route: 048
     Dates: start: 20111227, end: 20120405

REACTIONS (1)
  - Refractory cytopenia with unilineage dysplasia [Unknown]
